FAERS Safety Report 8988401 (Version 1)
Quarter: 2012Q4

REPORT INFORMATION
  Report Type: Spontaneous
  Country: DK (occurrence: None)
  Receive Date: 20121218
  Receipt Date: 20121218
  Transmission Date: 20130627
  Serious: Yes (Other)
  Sender: FDA-Public Use
  Company Number: 2012MA014100

PATIENT
  Age: 73 Year
  Sex: Female

DRUGS (7)
  1. OXALIPLATIN FOR INJECTION [Suspect]
     Route: 042
     Dates: start: 20121207, end: 20121207
  2. STILNOX [Concomitant]
  3. GASTROLOC [Concomitant]
  4. MANIDIPINA [Concomitant]
  5. GRANISETRON [Concomitant]
  6. DEXAMETHASONE [Concomitant]
  7. NEBIVOLOL [Concomitant]

REACTIONS (3)
  - Bronchospasm [None]
  - Laryngospasm [None]
  - Dyspnoea [None]
